FAERS Safety Report 13980349 (Version 2)
Quarter: 2017Q3

REPORT INFORMATION
  Report Type: Spontaneous
  Country: SE (occurrence: SE)
  Receive Date: 20170917
  Receipt Date: 20170918
  Transmission Date: 20171128
  Serious: Yes (Hospitalization, Other)
  Sender: FDA-Public Use
  Company Number: SE-MYLANLABS-2017M1056327

PATIENT
  Age: 31 Year
  Sex: Female

DRUGS (8)
  1. GABAPENTIN. [Concomitant]
     Active Substance: GABAPENTIN
     Dates: start: 20120515
  2. LEMTRADA [Interacting]
     Active Substance: ALEMTUZUMAB
     Indication: MULTIPLE SCLEROSIS
     Dosage: 12 MG 1X1 I 3 DAGAR
     Route: 042
     Dates: start: 20151013, end: 20161020
  3. TOLTERODINE [Concomitant]
     Active Substance: TOLTERODINE
     Dates: start: 20161007
  4. BACLOFEN. [Concomitant]
     Active Substance: BACLOFEN
     Dates: start: 20161005
  5. NORSPAN [Concomitant]
     Active Substance: BUPRENORPHINE
     Dates: start: 20140728
  6. ALVEDON [Concomitant]
     Active Substance: ACETAMINOPHEN
     Dates: start: 20170504
  7. CETIRIZINE [Concomitant]
     Active Substance: CETIRIZINE HYDROCHLORIDE
     Dates: start: 20151116
  8. THACAPZOL 5 MG TABLETTER [Suspect]
     Active Substance: METHIMAZOLE
     Indication: BASEDOW^S DISEASE
     Dosage: 5 MG 2X1
     Route: 048
     Dates: start: 20170719, end: 20170724

REACTIONS (1)
  - Febrile neutropenia [Recovered/Resolved]

NARRATIVE: CASE EVENT DATE: 20170724
